FAERS Safety Report 22249167 (Version 1)
Quarter: 2023Q2

REPORT INFORMATION
  Report Type: Spontaneous
  Country: US (occurrence: None)
  Receive Date: 20230424
  Receipt Date: 20230424
  Transmission Date: 20230721
  Serious: Yes (Other)
  Sender: FDA-Public Use
  Company Number: None

PATIENT
  Age: 10 Month
  Sex: Male
  Weight: 9 kg

DRUGS (1)
  1. ZOLGENSMA [Suspect]
     Active Substance: ONASEMNOGENE ABEPARVOVEC-XIOI
     Indication: Spinal muscular atrophy
     Dosage: FREQUENCY : ONCE;?
     Route: 042
     Dates: start: 20220715, end: 20220715

REACTIONS (4)
  - Liver disorder [None]
  - Vomiting [None]
  - Illness [None]
  - Head circumference abnormal [None]

NARRATIVE: CASE EVENT DATE: 20230424
